FAERS Safety Report 10087545 (Version 1)
Quarter: 2014Q2

REPORT INFORMATION
  Report Type: Spontaneous
  Country: US (occurrence: US)
  Receive Date: 20140418
  Receipt Date: 20140418
  Transmission Date: 20141212
  Serious: No
  Sender: FDA-Public Use
  Company Number: US-PURDUE-USA-2013-0108640

PATIENT
  Age: 57 Year
  Sex: Male

DRUGS (3)
  1. OXYCONTIN (NDA 22-272) [Suspect]
     Indication: PAIN
     Dosage: 180 MG, DAILY
     Route: 048
  2. OXYCODONE HCL IR CAPSULES [Suspect]
     Indication: BREAKTHROUGH PAIN
     Dosage: 60 MG, DAILY
     Route: 048
  3. MORPHINE SULFATE (SIMILAR TO NDA 19-516) [Suspect]
     Indication: PAIN

REACTIONS (2)
  - Drug ineffective [Unknown]
  - Malaise [Unknown]
